FAERS Safety Report 10797305 (Version 2)
Quarter: 2015Q2

REPORT INFORMATION
  Report Type: Report from Study
  Country: CA (occurrence: CA)
  Receive Date: 20150216
  Receipt Date: 20150608
  Transmission Date: 20150821
  Serious: Yes (Other)
  Sender: FDA-Public Use
  Company Number: CA-JNJFOC-20150103576

PATIENT
  Sex: Female

DRUGS (1)
  1. REMICADE [Suspect]
     Active Substance: INFLIXIMAB
     Indication: CROHN^S DISEASE
     Route: 042
     Dates: start: 20121212

REACTIONS (6)
  - Abdominal discomfort [Unknown]
  - Abdominal distension [Unknown]
  - Crohn^s disease [Recovered/Resolved]
  - Pain [Unknown]
  - Diarrhoea [Recovering/Resolving]
  - Hernia [Unknown]
